FAERS Safety Report 21556513 (Version 1)
Quarter: 2022Q4

REPORT INFORMATION
  Report Type: Spontaneous
  Country: US (occurrence: US)
  Receive Date: 20221104
  Receipt Date: 20221104
  Transmission Date: 20230113
  Serious: No
  Sender: FDA-Public Use
  Company Number: US-ANIPHARMA-2022-US-021746

PATIENT
  Sex: Male

DRUGS (1)
  1. CORTICOTROPIN [Suspect]
     Active Substance: CORTICOTROPIN
     Indication: Product used for unknown indication
     Route: 065

REACTIONS (6)
  - Arthralgia [Unknown]
  - Back pain [Unknown]
  - Pain [Unknown]
  - Feeling abnormal [Unknown]
  - Influenza like illness [Unknown]
  - Arthralgia [Unknown]
